FAERS Safety Report 12838732 (Version 2)
Quarter: 2016Q4

REPORT INFORMATION
  Report Type: Spontaneous
  Country: US (occurrence: US)
  Receive Date: 20161012
  Receipt Date: 20161121
  Transmission Date: 20170207
  Serious: No
  Sender: FDA-Public Use
  Company Number: US-PFIZER INC-2016466879

PATIENT
  Age: 13 Year
  Sex: Male

DRUGS (10)
  1. LEVOTHYROXINE. [Concomitant]
     Active Substance: LEVOTHYROXINE
     Indication: HYPOTHYROIDISM
     Dosage: 50 UG, DAILY
  2. DIAZEPAM. [Concomitant]
     Active Substance: DIAZEPAM
     Indication: CEREBRAL PALSY
     Dosage: 5 MG, 1X/DAY
  3. RITALIN [Concomitant]
     Active Substance: METHYLPHENIDATE HYDROCHLORIDE
     Dosage: 40 MG, 1X/DAY
  4. ALBUTEROL. [Concomitant]
     Active Substance: ALBUTEROL
     Indication: ASTHMA
     Dosage: UNK UNK, AS NEEDED
  5. GENOTROPIN [Suspect]
     Active Substance: SOMATROPIN
     Indication: GROWTH HORMONE DEFICIENCY
     Dosage: 2 MG, UNK
     Dates: end: 20160728
  6. CLONIDINE. [Concomitant]
     Active Substance: CLONIDINE
     Indication: ATTENTION DEFICIT/HYPERACTIVITY DISORDER
     Dosage: 0.3 MG, 24HR,  PATCH)
  7. GENOTROPIN [Suspect]
     Active Substance: SOMATROPIN
     Dosage: 1.4 MG, DAILY (12 MG TAKE 1.4MG DAILY)
     Route: 058
     Dates: start: 20160728
  8. TEGRETOL [Concomitant]
     Active Substance: CARBAMAZEPINE
     Indication: SEIZURE
     Dosage: 200 MG, 1X/DAY
  9. GENOTROPIN [Suspect]
     Active Substance: SOMATROPIN
     Dosage: 1.6 MG, 1X/DAY
  10. DAYTRANA [Concomitant]
     Active Substance: METHYLPHENIDATE
     Dosage: 10 MG, (PER 9 HR PATCH)

REACTIONS (2)
  - Emotional disorder [Recovered/Resolved]
  - Crying [Recovered/Resolved]

NARRATIVE: CASE EVENT DATE: 20160928
